FAERS Safety Report 7365115-7 (Version None)
Quarter: 2011Q1

REPORT INFORMATION
  Report Type: 
  Country: None (occurrence: None)
  Receive Date: 20110321
  Receipt Date: 20110314
  Transmission Date: 20110831
  Serious: No
  Sender: FDA-Public Use
  Company Number: US-PFIZER INC-2011056324

PATIENT
  Sex: Female

DRUGS (3)
  1. AROMASIN [Suspect]
     Dosage: UNK
  2. FEMARA [Suspect]
     Dosage: UNK
  3. ARIMIDEX [Suspect]
     Dosage: UNK

REACTIONS (7)
  - RHINITIS [None]
  - NASAL CONGESTION [None]
  - MYALGIA [None]
  - BRONCHITIS [None]
  - BONE PAIN [None]
  - EMOTIONAL DISORDER [None]
  - OROPHARYNGEAL PAIN [None]
